FAERS Safety Report 16194379 (Version 1)
Quarter: 2019Q2

REPORT INFORMATION
  Report Type: Spontaneous
  Country: SK (occurrence: SK)
  Receive Date: 20190414
  Receipt Date: 20190414
  Transmission Date: 20190711
  Serious: Yes (Hospitalization)
  Sender: FDA-Public Use
  Company Number: SK-TEVA-2019-SK-1036698

PATIENT
  Age: 69 Year
  Sex: Male
  Weight: 70 kg

DRUGS (7)
  1. LINEZOLID. [Suspect]
     Active Substance: LINEZOLID
     Indication: ENDOCARDITIS
  2. FURON [Concomitant]
     Active Substance: FUROSEMIDE
     Dosage: 40 MG: 1-1-0
  3. EBRANTIL [Concomitant]
     Active Substance: URAPIDIL
     Dosage: 1-0-1
  4. MILURIT [Concomitant]
     Active Substance: ALLOPURINOL
     Dosage: 0-1-0
  5. DIGOXIN. [Concomitant]
     Active Substance: DIGOXIN
     Dosage: 1-0-0
  6. BETALOC ZOK [Concomitant]
     Active Substance: METOPROLOL SUCCINATE
     Dosage: 1-0-1
  7. VEROSPIRON [Concomitant]
     Active Substance: SPIRONOLACTONE
     Dosage: 1-0-1

REACTIONS (1)
  - Aplastic anaemia [Recovered/Resolved]

NARRATIVE: CASE EVENT DATE: 20190214
